FAERS Safety Report 22046531 (Version 1)
Quarter: 2023Q1

REPORT INFORMATION
  Report Type: Spontaneous
  Country: FR (occurrence: FR)
  Receive Date: 20230228
  Receipt Date: 20230228
  Transmission Date: 20230418
  Serious: Yes (Hospitalization)
  Sender: FDA-Public Use
  Company Number: None

PATIENT
  Age: 52 Year
  Sex: Male

DRUGS (2)
  1. GLUCOPHAGE [Suspect]
     Active Substance: METFORMIN HYDROCHLORIDE
     Indication: Poisoning deliberate
     Dosage: 30000 MG
     Route: 048
     Dates: start: 20230119, end: 20230119
  2. OZEMPIC [Suspect]
     Active Substance: SEMAGLUTIDE
     Indication: Poisoning deliberate
     Dosage: 4 MG
     Route: 058
     Dates: start: 20230119, end: 20230119

REACTIONS (4)
  - Gastrointestinal disorder [Recovered/Resolved]
  - Hyperlactacidaemia [Recovered/Resolved]
  - Intentional overdose [Unknown]
  - Intentional product misuse [Unknown]

NARRATIVE: CASE EVENT DATE: 20230119
